FAERS Safety Report 25621899 (Version 1)
Quarter: 2025Q3

REPORT INFORMATION
  Report Type: Spontaneous
  Country: US (occurrence: US)
  Receive Date: 20250730
  Receipt Date: 20250730
  Transmission Date: 20251020
  Serious: Yes (Life-Threatening, Hospitalization)
  Sender: MYLAN
  Company Number: US-MYLANLABS-2025M1062875

PATIENT
  Age: 16 Year
  Sex: Female

DRUGS (4)
  1. DEXAMETHASONE [Suspect]
     Active Substance: DEXAMETHASONE
     Indication: Precursor T-lymphoblastic lymphoma/leukaemia
  2. ASPARAGINASE [Suspect]
     Active Substance: ASPARAGINASE
     Indication: Precursor T-lymphoblastic lymphoma/leukaemia
  3. DAUNORUBICIN [Suspect]
     Active Substance: DAUNORUBICIN
     Indication: Precursor T-lymphoblastic lymphoma/leukaemia
  4. VINCRISTINE [Suspect]
     Active Substance: VINCRISTINE
     Indication: Precursor T-lymphoblastic lymphoma/leukaemia

REACTIONS (3)
  - Tumour lysis syndrome [Recovered/Resolved]
  - Renal failure [Recovered/Resolved]
  - Respiratory failure [Recovered/Resolved]
